FAERS Safety Report 8167321-0 (Version None)
Quarter: 2012Q1

REPORT INFORMATION
  Report Type: 
  Country: None (occurrence: None)
  Receive Date: 20120227
  Receipt Date: 20120222
  Transmission Date: 20120608
  Serious: Yes (Hospitalization)
  Sender: FDA-Public Use
  Company Number: FR-PFIZER INC-2012046203

PATIENT
  Age: 6 Year

DRUGS (2)
  1. PEDIATRIC ADVIL [Suspect]
     Indication: PYREXIA
     Dosage: UNK
     Route: 048
     Dates: start: 20111024, end: 20111025
  2. AMOXICILLIN TRIHYDRATE [Concomitant]
     Indication: PYREXIA

REACTIONS (1)
  - STEVENS-JOHNSON SYNDROME [None]
